FAERS Safety Report 7924158 (Version 4)
Quarter: 2014Q1

REPORT INFORMATION
  Report Type: Spontaneous
  Country: US (occurrence: US)
  Receive Date: 20110502
  Receipt Date: 20140211
  Transmission Date: 20141002
  Serious: Yes (Hospitalization, Other)
  Sender: FDA-Public Use
  Company Number: US-BAYER-2011-036937

PATIENT
  Age: 27 Year
  Sex: Female

DRUGS (10)
  1. YAZ [Suspect]
     Indication: CONTRACEPTION
     Dosage: UNK
     Route: 048
     Dates: start: 2004, end: 20090930
  2. YASMIN [Suspect]
     Indication: CONTRACEPTION
     Dosage: UNK
     Route: 048
     Dates: start: 20040801, end: 2009
  3. ADDERALL XR [Concomitant]
     Indication: ATTENTION DEFICIT/HYPERACTIVITY DISORDER
     Dosage: UNK
     Dates: start: 2007, end: 2012
  4. AMPHETAMINE SALTS [Concomitant]
     Dosage: 30 MG, UNK
     Dates: start: 20090429, end: 20120507
  5. CLONAZEPAM [Concomitant]
     Dosage: UNK
     Dates: start: 20090331, end: 20090904
  6. SERTRALINE [Concomitant]
     Dosage: UNK
     Dates: start: 20090429, end: 20091030
  7. OXYCODONE/APAP [Concomitant]
     Dosage: 5325 UNK, UNK
     Dates: start: 20090604, end: 20090710
  8. HYDROCODONE [Concomitant]
     Dosage: UNK
     Dates: start: 20090606, end: 20090611
  9. ZOLOFT [Concomitant]
  10. KLONOPIN [Concomitant]

REACTIONS (15)
  - Gallbladder disorder [None]
  - Gallbladder pain [None]
  - Nausea [None]
  - Muscle spasms [None]
  - Pyrexia [None]
  - Pain [None]
  - Hepatitis [None]
  - Urinary tract infection [None]
  - Perforation bile duct [None]
  - Mobility decreased [None]
  - Procedural complication [None]
  - Malaise [None]
  - Depression [None]
  - Biliary fibrosis [None]
  - Cholecystitis acute [None]
